FAERS Safety Report 16642221 (Version 3)
Quarter: 2019Q3

REPORT INFORMATION
  Report Type: Spontaneous
  Country: US (occurrence: US)
  Receive Date: 20190729
  Receipt Date: 20190909
  Transmission Date: 20191004
  Serious: No
  Sender: FDA-Public Use
  Company Number: US-JNJFOC-20190735436

PATIENT
  Age: 46 Year
  Sex: Female
  Weight: 135.29 kg

DRUGS (10)
  1. BONIVA [Concomitant]
     Active Substance: IBANDRONATE SODIUM
     Route: 065
  2. REMICADE [Suspect]
     Active Substance: INFLIXIMAB
     Route: 042
  3. FISH OIL [Concomitant]
     Active Substance: FISH OIL
     Route: 065
  4. PROTONIX [Concomitant]
     Active Substance: PANTOPRAZOLE SODIUM
     Route: 065
  5. REMICADE [Suspect]
     Active Substance: INFLIXIMAB
     Indication: COLITIS ULCERATIVE
     Route: 042
     Dates: start: 2013
  6. BENTYL [Concomitant]
     Active Substance: DICYCLOMINE HYDROCHLORIDE
     Route: 065
  7. ALBUTEROL                          /00139501/ [Concomitant]
     Active Substance: ALBUTEROL
     Route: 065
  8. SIMVASTATIN. [Concomitant]
     Active Substance: SIMVASTATIN
     Route: 065
  9. VALSARTAN. [Concomitant]
     Active Substance: VALSARTAN
     Route: 065
  10. LIALDA [Concomitant]
     Active Substance: MESALAMINE
     Route: 065

REACTIONS (6)
  - Infusion related reaction [Recovered/Resolved]
  - Fatigue [Not Recovered/Not Resolved]
  - Gait disturbance [Recovered/Resolved]
  - Dizziness [Recovered/Resolved]
  - Feeling abnormal [Recovered/Resolved]
  - Palpitations [Recovered/Resolved]

NARRATIVE: CASE EVENT DATE: 20190724
